FAERS Safety Report 25951430 (Version 4)
Quarter: 2025Q4

REPORT INFORMATION
  Report Type: Spontaneous
  Country: US (occurrence: US)
  Receive Date: 20251023
  Receipt Date: 20251124
  Transmission Date: 20260117
  Serious: No
  Sender: AMGEN
  Company Number: US-AMGEN-USASP2025208600

PATIENT
  Age: 84 Year
  Sex: Male

DRUGS (2)
  1. AIMOVIG [Suspect]
     Active Substance: ERENUMAB-AOOE
     Indication: Headache
     Dosage: 70 MILLIGRAM
     Route: 065
     Dates: start: 20251017
  2. AIMOVIG [Suspect]
     Active Substance: ERENUMAB-AOOE
     Indication: Off label use
     Dosage: 70 MILLIGRAM
     Route: 065

REACTIONS (5)
  - Device difficult to use [Unknown]
  - Headache [Unknown]
  - Drug dose omission by device [Unknown]
  - Illness [Unknown]
  - Off label use [Unknown]

NARRATIVE: CASE EVENT DATE: 20251017
